FAERS Safety Report 15334682 (Version 1)
Quarter: 2018Q3

REPORT INFORMATION
  Report Type: Spontaneous
  Country: SE (occurrence: SE)
  Receive Date: 20180830
  Receipt Date: 20180830
  Transmission Date: 20181010
  Serious: Yes (Hospitalization)
  Sender: FDA-Public Use
  Company Number: SE-ROCHE-2177856

PATIENT
  Age: 54 Year
  Sex: Male

DRUGS (4)
  1. TAZOCIN [Concomitant]
     Active Substance: PIPERACILLIN SODIUM\TAZOBACTAM SODIUM
     Route: 065
     Dates: start: 20180730
  2. ALVEDON [Concomitant]
     Active Substance: ACETAMINOPHEN
     Route: 065
  3. FRAGMIN [Concomitant]
     Active Substance: DALTEPARIN SODIUM
     Route: 058
  4. ATEZOLIZUMAB. [Suspect]
     Active Substance: ATEZOLIZUMAB
     Indication: LUNG ADENOCARCINOMA
     Dosage: MOST RECENT DOSE PRIOR TO EVENT: 25/JUL/2018
     Route: 042
     Dates: start: 20180612

REACTIONS (1)
  - Nuclear magnetic resonance imaging brain abnormal [Not Recovered/Not Resolved]

NARRATIVE: CASE EVENT DATE: 20180731
